FAERS Safety Report 5233683-7 (Version None)
Quarter: 2007Q1

REPORT INFORMATION
  Report Type: 
  Country: None (occurrence: None)
  Receive Date: 20070208
  Receipt Date: 20070202
  Transmission Date: 20070707
  Serious: Yes (Other)
  Sender: FDA-Public Use
  Company Number: US-AVENTIS-200619697US

PATIENT
  Sex: Female
  Weight: 55.34 kg

DRUGS (9)
  1. LANTUS [Suspect]
     Indication: DIABETES MELLITUS INSULIN-DEPENDENT
  2. LANTUS [Suspect]
  3. HUMALOG [Concomitant]
     Dosage: DOSE: UNK
     Route: 058
  4. PROTONIX [Concomitant]
     Dosage: DOSE QUANTITY: 40
     Route: 048
  5. ASPIRIN [Concomitant]
  6. ENALAPRIL MALEATE [Concomitant]
     Dosage: DOSE: UNK
  7. METOPROLOL [Concomitant]
     Dosage: DOSE: UNK
  8. LOPRESSOR [Concomitant]
     Dosage: DOSE QUANTITY: 50
     Route: 048
  9. VASOTEC                            /00935901/ [Concomitant]
     Dosage: DOSE QUANTITY: 20
     Route: 048

REACTIONS (9)
  - ANXIETY [None]
  - BLOOD GLUCOSE INCREASED [None]
  - BLOOD PRESSURE INCREASED [None]
  - DRUG INEFFECTIVE [None]
  - HEADACHE [None]
  - HEART RATE INCREASED [None]
  - HYPERHIDROSIS [None]
  - MALAISE [None]
  - PHARMACEUTICAL PRODUCT COMPLAINT [None]
